FAERS Safety Report 7291344-7 (Version None)
Quarter: 2011Q1

REPORT INFORMATION
  Report Type: 
  Country: None (occurrence: None)
  Receive Date: 20110214
  Receipt Date: 20110210
  Transmission Date: 20110831
  Serious: Yes (Hospitalization)
  Sender: FDA-Public Use
  Company Number: A0912900A

PATIENT
  Age: 72 Year
  Sex: Female

DRUGS (2)
  1. AVANDIA [Suspect]
     Dosage: 1TAB PER DAY
     Route: 048
     Dates: start: 20030101, end: 20080101
  2. BLOOD PRESSURE MEDICATION [Concomitant]

REACTIONS (6)
  - DRUG INEFFECTIVE [None]
  - CHEST PAIN [None]
  - VASCULAR GRAFT [None]
  - CARDIAC PACEMAKER INSERTION [None]
  - CORONARY ARTERY OCCLUSION [None]
  - CARDIAC ARREST [None]
